FAERS Safety Report 18083321 (Version 1)
Quarter: 2020Q3

REPORT INFORMATION
  Report Type: Other
  Country: US (occurrence: US)
  Receive Date: 20200728
  Receipt Date: 20200728
  Transmission Date: 20201103
  Serious: Yes (Other)
  Sender: FDA-Public Use
  Company Number: US-ROCHE-2648117

PATIENT
  Sex: Female

DRUGS (18)
  1. METOPROLOL TARTRATE. [Concomitant]
     Active Substance: METOPROLOL TARTRATE
     Dosage: 50 MG TABLET TAKE 1 PO BID
     Route: 048
  2. ATORVASTATIN CALCIUM. [Concomitant]
     Active Substance: ATORVASTATIN CALCIUM
     Dosage: TAKE 80 MG TABLET PO DAILY
     Route: 048
  3. CALCITRIOL. [Concomitant]
     Active Substance: CALCITRIOL
     Dosage: 5 MCG CAPSULES TAKE 1 PO AS DIRECTED
     Route: 048
  4. CAPECITABINE. [Concomitant]
     Active Substance: CAPECITABINE
     Dosage: TAKE 1 TAB PO DAILY
     Route: 048
  5. LEVEMIR [Concomitant]
     Active Substance: INSULIN DETEMIR
     Dosage: 12 ML AS DIRECTED SUB Q
     Route: 058
  6. SODIUM BICARBONATE. [Concomitant]
     Active Substance: SODIUM BICARBONATE
     Dosage: 325 MG TABLET TAKE 1 PO BID
     Route: 048
  7. XELODA [Suspect]
     Active Substance: CAPECITABINE
     Indication: RENAL FAILURE
     Dosage: 2 TABLETS ORAL BID X 14 DAYS EVERY 21 DAYS
     Route: 048
  8. HYDRALAZINE HCL [Concomitant]
     Active Substance: HYDRALAZINE HYDROCHLORIDE
     Dosage: 100 MG TABLET TAKE 1 PO 3 TIMES A DAY.
     Route: 048
  9. XELODA [Suspect]
     Active Substance: CAPECITABINE
     Indication: COLON CANCER
     Dosage: TAKE 2 TABLET(S) BY MOUTH TWICE A DAY 2 WEEK(S) ON
     Route: 048
  10. VICTOZA [Concomitant]
     Active Substance: LIRAGLUTIDE
     Dosage: 1.8 MG AS DIRECTED SUB?Q
     Route: 058
  11. ASPIRIN. [Concomitant]
     Active Substance: ASPIRIN
     Dosage: TAKE 1 TABLET DAILY
     Route: 048
  12. GABAPENTIN. [Concomitant]
     Active Substance: GABAPENTIN
  13. PRAVASTATIN SODIUM. [Concomitant]
     Active Substance: PRAVASTATIN SODIUM
     Dosage: 80 MG TABLET TAKE 1 PO QHS
     Route: 048
  14. CLOPIDOGREL [Concomitant]
     Active Substance: CLOPIDOGREL BISULFATE
     Dosage: TAKE 1 TAB PO DAILY
     Route: 048
  15. AMLODIPINE BESYLATE. [Concomitant]
     Active Substance: AMLODIPINE BESYLATE
     Dosage: 1 PO DAILY
     Route: 048
  16. FERROUS SULFATE. [Concomitant]
     Active Substance: FERROUS SULFATE
     Dosage: 325(65 ) MG TABLET TAKE 1 PO DAILY
     Route: 048
  17. SEVELAMER CARBONATE. [Concomitant]
     Active Substance: SEVELAMER CARBONATE
     Dosage: 800 MG TABLET TAKE 1 PO TID
     Route: 048
  18. ZOFRAN [Concomitant]
     Active Substance: ONDANSETRON HYDROCHLORIDE
     Dosage: TAKE 1 PO Q8H PRN NAUSEA, DISPENSE 30 TABS , REFILLS : 1, TAKE AS NEEDED FOR NAUSEA?EVERY 8 HRS
     Route: 048

REACTIONS (1)
  - Renal failure [Unknown]
